FAERS Safety Report 9237121 (Version 1)
Quarter: 2013Q2

REPORT INFORMATION
  Report Type: Spontaneous
  Country: US (occurrence: US)
  Receive Date: 20130417
  Receipt Date: 20130417
  Transmission Date: 20140414
  Serious: No
  Sender: FDA-Public Use
  Company Number: US-PFIZER INC-2013117724

PATIENT
  Age: 70 Year
  Sex: Female
  Weight: 87.08 kg

DRUGS (5)
  1. CELEBREX [Suspect]
     Indication: ARTHRITIS
     Dosage: 100 MG, 2X/DAY
  2. DIOVAN [Concomitant]
     Indication: HYPERTENSION
     Dosage: 250 MG, 1X/DAY
  3. NORVASC [Concomitant]
     Indication: HYPERTENSION
     Dosage: UNK
  4. HYDROCHLOROTHIAZIDE [Concomitant]
     Indication: HYPERTENSION
     Dosage: 25 MG, UNK
  5. VITAMIN D [Concomitant]
     Dosage: UNK

REACTIONS (1)
  - Drug ineffective [Unknown]
